FAERS Safety Report 14160008 (Version 1)
Quarter: 2017Q4

REPORT INFORMATION
  Report Type: Spontaneous
  Country: GB (occurrence: GB)
  Receive Date: 20171106
  Receipt Date: 20171106
  Transmission Date: 20180321
  Serious: Yes (Other)
  Sender: FDA-Public Use
  Company Number: GB-AUROBINDO-AUR-APL-2017-43176

PATIENT
  Age: 74 Year
  Sex: Male
  Weight: 78.4 kg

DRUGS (1)
  1. OLANZAPINE 5MG [Suspect]
     Active Substance: OLANZAPINE
     Indication: HYPOMANIA
     Dosage: 5 MG, TWO TIMES A DAY
     Route: 048
     Dates: start: 2012

REACTIONS (1)
  - Parkinsonism [Not Recovered/Not Resolved]
